FAERS Safety Report 10023333 (Version 5)
Quarter: 2015Q3

REPORT INFORMATION
  Report Type: Spontaneous
  Country: CA (occurrence: CA)
  Receive Date: 20140320
  Receipt Date: 20150811
  Transmission Date: 20151125
  Serious: Yes (Other)
  Sender: FDA-Public Use
  Company Number: CA-ROCHE-1365058

PATIENT
  Age: 58 Year
  Sex: Female

DRUGS (2)
  1. SYMBICORT [Concomitant]
     Active Substance: BUDESONIDE\FORMOTEROL FUMARATE DIHYDRATE
  2. XOLAIR [Suspect]
     Active Substance: OMALIZUMAB
     Indication: ASTHMA
     Route: 058
     Dates: start: 20100216, end: 20110623

REACTIONS (8)
  - Sinus polyp [Unknown]
  - Lung infection [Unknown]
  - Asthma [Unknown]
  - Sinusitis [Unknown]
  - Drug ineffective [Unknown]
  - Mass [Unknown]
  - Malaise [Unknown]
  - Aphonia [Unknown]

NARRATIVE: CASE EVENT DATE: 201304
